FAERS Safety Report 7940431-6 (Version None)
Quarter: 2011Q4

REPORT INFORMATION
  Report Type: 
  Country: None (occurrence: None)
  Receive Date: 20111128
  Receipt Date: 20111122
  Transmission Date: 20120403
  Serious: Yes (Life-Threatening, Hospitalization, Other)
  Sender: FDA-Public Use
  Company Number: NL-AMGEN-NLDSP2011061973

PATIENT
  Age: 80 Year
  Sex: Male

DRUGS (2)
  1. PREDNISONE [Concomitant]
     Dosage: UNK UNK, UNK
  2. ENBREL [Suspect]
     Indication: RHEUMATOID ARTHRITIS
     Dosage: 50 MG, WEEKLY
     Dates: start: 20091101

REACTIONS (4)
  - AORTIC ANEURYSM [None]
  - KIDNEY INFECTION [None]
  - LUNG NEOPLASM MALIGNANT [None]
  - CYSTITIS [None]
